FAERS Safety Report 14380205 (Version 1)
Quarter: 2018Q1

REPORT INFORMATION
  Report Type: Spontaneous
  Country: US (occurrence: US)
  Receive Date: 20180111
  Receipt Date: 20180111
  Transmission Date: 20180509
  Serious: Yes (Life-Threatening, Hospitalization, Disabling)
  Sender: FDA-Public Use
  Company Number: None

PATIENT
  Sex: Female
  Weight: 108 kg

DRUGS (5)
  1. COZAAR [Concomitant]
     Active Substance: LOSARTAN POTASSIUM
  2. CLARITIN [Concomitant]
     Active Substance: LORATADINE
  3. METFORMIN [Concomitant]
     Active Substance: METFORMIN HYDROCHLORIDE
  4. LEVAQUIN [Suspect]
     Active Substance: LEVOFLOXACIN
     Indication: POSTOPERATIVE CARE
     Route: 042
     Dates: start: 20110323, end: 20110323
  5. HYDROCHLOROTHIAZIDE. [Concomitant]
     Active Substance: HYDROCHLOROTHIAZIDE

REACTIONS (13)
  - Multiple organ dysfunction syndrome [None]
  - Type 1 diabetes mellitus [None]
  - Neuropathy peripheral [None]
  - Memory impairment [None]
  - Dialysis [None]
  - Pain [None]
  - Musculoskeletal stiffness [None]
  - Middle insomnia [None]
  - Renal disorder [None]
  - Loss of consciousness [None]
  - Lung disorder [None]
  - Cardiac disorder [None]
  - Balance disorder [None]

NARRATIVE: CASE EVENT DATE: 20110323
